FAERS Safety Report 21298897 (Version 1)
Quarter: 2022Q3

REPORT INFORMATION
  Report Type: Spontaneous
  Country: US (occurrence: None)
  Receive Date: 20220905
  Receipt Date: 20220905
  Transmission Date: 20221026
  Serious: Yes (Disabling)
  Sender: FDA-Public Use
  Company Number: None

PATIENT
  Age: 52 Year
  Sex: Female
  Weight: 56.25 kg

DRUGS (6)
  1. COMPLETE CARE TARTAR CONTROL PLUS WHITENING BAKING SODA AND PEROXIDE [Suspect]
     Active Substance: SODIUM FLUORIDE
     Indication: Dental cleaning
     Dates: start: 20220818, end: 20220824
  2. OLUX [Concomitant]
     Active Substance: CLOBETASOL PROPIONATE
  3. NIZORAL [Concomitant]
     Active Substance: KETOCONAZOLE
  4. VITAMINS [Concomitant]
     Active Substance: VITAMINS
  5. DIETARY SUPPLEMENT [Concomitant]
     Active Substance: DIETARY SUPPLEMENT
  6. KRILL OIL [Concomitant]
     Active Substance: DIETARY SUPPLEMENT\KRILL OIL

REACTIONS (12)
  - Lip disorder [None]
  - Lip dry [None]
  - Dry mouth [None]
  - Swollen tongue [None]
  - Plicated tongue [None]
  - Stomatitis [None]
  - Cheilitis [None]
  - Chapped lips [None]
  - Oral mucosal erythema [None]
  - Oral disorder [None]
  - Oral pain [None]
  - Glossodynia [None]

NARRATIVE: CASE EVENT DATE: 20220819
